FAERS Safety Report 13667102 (Version 2)
Quarter: 2017Q3

REPORT INFORMATION
  Report Type: Report from Study
  Country: BR (occurrence: BR)
  Receive Date: 20170619
  Receipt Date: 20170822
  Transmission Date: 20171127
  Serious: Yes (Other)
  Sender: FDA-Public Use
  Company Number: BR-ALEXION PHARMACEUTICALS INC.-A201706740

PATIENT
  Age: 27 Year
  Sex: Female
  Weight: 72 kg

DRUGS (10)
  1. CYCLOSPORINE. [Concomitant]
     Active Substance: CYCLOSPORINE
     Indication: APLASIA
     Dosage: 100 MG, QD
     Route: 048
  2. SOLIRIS [Suspect]
     Active Substance: ECULIZUMAB
     Dosage: 900 MG, Q2W
     Route: 042
  3. OMEPRAZOLE. [Concomitant]
     Active Substance: OMEPRAZOLE
     Indication: APLASIA
     Dosage: 40 MG, QD
     Route: 048
     Dates: start: 201701
  4. ACYCLOVIR                          /00587301/ [Concomitant]
     Active Substance: ACYCLOVIR
     Indication: APLASIA
     Dosage: 200 MG, BID
     Route: 048
     Dates: start: 201701
  5. MAGNESIUM OXIDE. [Concomitant]
     Active Substance: MAGNESIUM OXIDE
     Indication: APLASIA
     Dosage: UNK, QD
     Route: 048
  6. ITRACONAZOLE. [Concomitant]
     Active Substance: ITRACONAZOLE
     Indication: APLASIA
     Dosage: 100 MG, BID
     Route: 048
     Dates: start: 201701
  7. FOLIC ACID. [Concomitant]
     Active Substance: FOLIC ACID
     Indication: APLASIA
     Dosage: UNK, QD
     Route: 048
  8. SOLIRIS [Suspect]
     Active Substance: ECULIZUMAB
     Indication: PAROXYSMAL NOCTURNAL HAEMOGLOBINURIA
     Dosage: 600 MG, QW
     Route: 042
     Dates: start: 20161116, end: 20161209
  9. SULFAMETHOXAZOLE [Concomitant]
     Active Substance: SULFAMETHOXAZOLE
     Indication: APLASIA
     Dosage: UNK, TIW
     Route: 048
  10. CIPROFLOXACIN. [Concomitant]
     Active Substance: CIPROFLOXACIN
     Indication: APLASIA
     Dosage: 500 MG, QD
     Route: 048
     Dates: start: 201701

REACTIONS (5)
  - Headache [Recovered/Resolved]
  - Haemoglobin decreased [Unknown]
  - Inappropriate schedule of drug administration [Unknown]
  - Platelet count decreased [Unknown]
  - Asthenia [Recovered/Resolved]

NARRATIVE: CASE EVENT DATE: 20170522
